FAERS Safety Report 26045185 (Version 1)
Quarter: 2025Q4

REPORT INFORMATION
  Report Type: Spontaneous
  Country: EU (occurrence: EU)
  Receive Date: 20251114
  Receipt Date: 20251114
  Transmission Date: 20260118
  Serious: Yes (Other)
  Sender: NEXUS PHARMACEUTICALS
  Company Number: EU-Nexus Pharma-000515

PATIENT
  Age: 42 Year
  Sex: Male

DRUGS (3)
  1. CYCLOPHOSPHAMIDE [Suspect]
     Active Substance: CYCLOPHOSPHAMIDE
     Indication: Extragonadal primary seminoma (pure)
     Dosage: 1300 MG/M2, ON DAY 1, 2 AND 3 EVERY TWO WEEKS
  2. PACLITAXEL [Suspect]
     Active Substance: PACLITAXEL
     Indication: Extragonadal primary seminoma (pure)
     Dosage: 200 MG/M2 ON DAY 1
  3. MESNA [Suspect]
     Active Substance: MESNA
     Indication: Extragonadal primary seminoma (pure)
     Dosage: 1950 MG/M2 ON DAY 1, 2 AND 3 EVERY TWO WEEKS

REACTIONS (4)
  - Pancytopenia [Recovered/Resolved]
  - Neuropathy peripheral [Unknown]
  - Ototoxicity [Unknown]
  - Blood lactate dehydrogenase decreased [Recovered/Resolved]
